FAERS Safety Report 18058521 (Version 1)
Quarter: 2020Q3

REPORT INFORMATION
  Report Type: Spontaneous
  Country: US (occurrence: US)
  Receive Date: 20200722
  Receipt Date: 20200722
  Transmission Date: 20201103
  Serious: Yes (Disabling)
  Sender: FDA-Public Use
  Company Number: None

PATIENT
  Age: 55 Year
  Sex: Male
  Weight: 130.5 kg

DRUGS (8)
  1. GARLIC. [Concomitant]
     Active Substance: GARLIC
  2. VITAMIN B COMPLEX [Concomitant]
     Active Substance: CYANOCOBALAMIN\DEXPANTHENOL\NIACINAMIDE\PYRIDOXINE HYDROCHLORIDE\RIBOFLAVIN 5^-PHOSPHATE SODIUM\THIAMINE HYDROCHLORIDE\VITAMIN B COMPLEX
  3. FISH OIL [Concomitant]
     Active Substance: FISH OIL
  4. ASPIRIN. [Concomitant]
     Active Substance: ASPIRIN
  5. BLUMEN CLEAR ADVANCED HAND SANITIZER [Suspect]
     Active Substance: ALCOHOL
     Indication: PERSONAL HYGIENE
     Route: 061
  6. PRAVISTATIN [Concomitant]
     Active Substance: PRAVASTATIN
  7. 50+ MULTI VITAMIN [Concomitant]
  8. BYDUREON [Concomitant]
     Active Substance: EXENATIDE

REACTIONS (3)
  - Headache [None]
  - Pain [None]
  - Vision blurred [None]

NARRATIVE: CASE EVENT DATE: 20200701
